FAERS Safety Report 7061482-2 (Version None)
Quarter: 2010Q4

REPORT INFORMATION
  Report Type: 
  Country: None (occurrence: None)
  Receive Date: 20101026
  Receipt Date: 20091022
  Transmission Date: 20110411
  Serious: No
  Sender: FDA-Public Use
  Company Number: US-KINGPHARMUSA00001-K200901333

PATIENT
  Sex: Female

DRUGS (1)
  1. MENEST [Suspect]
     Indication: HYSTERECTOMY
     Dosage: 0.625 MG, UNK
     Route: 048
     Dates: start: 20040101, end: 20091001

REACTIONS (1)
  - PRURITUS [None]
